FAERS Safety Report 5531266-2 (Version None)
Quarter: 2007Q4

REPORT INFORMATION
  Report Type: 
  Country: None (occurrence: None)
  Receive Date: 20071127
  Receipt Date: 20071113
  Transmission Date: 20080405
  Serious: Yes (Death, Hospitalization)
  Sender: FDA-Public Use
  Company Number: GXKR2007SK09739

PATIENT
  Age: 48 Year
  Sex: Male

DRUGS (7)
  1. METHYLPREDNISOLONE [Suspect]
     Dosage: 500 MG, QD; INTRAVENOUS
     Route: 042
  2. HEPARIN [Suspect]
     Dosage: SUBCUTANEOUS
     Route: 058
  3. ANTIBACTERIALS FOR SYSTEMIC USE(NOINGREDIENTS/SUBSTANCES) [Suspect]
  4. EPOPROSTENOL SODIUM [Suspect]
  5. URAPIDIL(URAPIDIL) [Suspect]
     Indication: HYPERTENSION
  6. FRESH FROZEN PLASMA [Concomitant]
  7. OXYGEN THERAPY (NO INGREDIENTS/SUBSTANCES) [Concomitant]

REACTIONS (6)
  - ANTIPHOSPHOLIPID SYNDROME [None]
  - CEREBRAL HAEMORRHAGE [None]
  - CONDITION AGGRAVATED [None]
  - EXTREMITY NECROSIS [None]
  - PAIN [None]
  - RENAL TUBULAR NECROSIS [None]
